FAERS Safety Report 9745831 (Version 1)
Quarter: 2013Q4

REPORT INFORMATION
  Report Type: Spontaneous
  Country: FR (occurrence: FR)
  Receive Date: 20131211
  Receipt Date: 20131211
  Transmission Date: 20140711
  Serious: Yes (Other)
  Sender: FDA-Public Use
  Company Number: FR-ASTRAZENECA-2013SE88700

PATIENT
  Sex: Male

DRUGS (22)
  1. DIPRIVAN [Suspect]
     Route: 042
     Dates: start: 20130823
  2. ETOMIDATE-LIPURO [Suspect]
     Dosage: 20 MG/ 10 ML
     Route: 042
     Dates: start: 20130823
  3. NIMBEX [Suspect]
     Route: 042
     Dates: start: 20130823
  4. REMIFENTANIL [Suspect]
     Route: 042
     Dates: start: 20130823
  5. CEFAMANDOLE [Suspect]
     Route: 042
     Dates: start: 20130823
  6. KARDEGIC [Concomitant]
  7. LEVOTHYROX [Concomitant]
  8. COVERSYL [Concomitant]
  9. PLAVIX [Concomitant]
  10. NOVONORM [Concomitant]
  11. TAHOR [Concomitant]
  12. XYZALL [Concomitant]
  13. INEXIUM [Concomitant]
  14. URAPIDIL [Concomitant]
  15. DOLIPRANE [Concomitant]
  16. MOPRAL [Concomitant]
  17. SUPRANE [Concomitant]
     Dates: start: 20130823
  18. HEPARINE [Concomitant]
     Dates: start: 20130823, end: 20130824
  19. TRAMADOL [Concomitant]
     Dates: start: 20130823
  20. PARACETAMOL [Concomitant]
     Dates: start: 20130823
  21. ACUPAN [Concomitant]
     Dates: start: 20130823
  22. DROLEPTAN [Concomitant]
     Dates: start: 20130823

REACTIONS (1)
  - Rash morbilliform [Recovered/Resolved]
